FAERS Safety Report 13034906 (Version 6)
Quarter: 2017Q4

REPORT INFORMATION
  Report Type: Report from Study
  Country: GB (occurrence: GB)
  Receive Date: 20161216
  Receipt Date: 20171020
  Transmission Date: 20180320
  Serious: Yes (Other)
  Sender: FDA-Public Use
  Company Number: ALCN2016GB008434

PATIENT
  Age: 67 Year
  Sex: Male

DRUGS (6)
  1. ATROPINE. [Suspect]
     Active Substance: ATROPINE
     Indication: ANGLE CLOSURE GLAUCOMA
     Dosage: 1 DF, QD
     Route: 047
  2. ACETAZOLAMIDE. [Suspect]
     Active Substance: ACETAZOLAMIDE
     Indication: ANGLE CLOSURE GLAUCOMA
     Dosage: 500 MG, UNK
     Route: 048
  3. DIAMOX SEQUELS [Suspect]
     Active Substance: ACETAZOLAMIDE
     Indication: CHOROIDAL HAEMORRHAGE
     Dosage: 250 MG, QDS
     Route: 065
  4. AZARGA [Suspect]
     Active Substance: BRINZOLAMIDE\TIMOLOL MALEATE
     Indication: ANGLE CLOSURE GLAUCOMA
     Dosage: BID
     Route: 047
  5. APRACLONIDINE [Suspect]
     Active Substance: APRACLONIDINE HYDROCHLORIDE
     Indication: ANGLE CLOSURE GLAUCOMA
     Dosage: 1 DF, TID
     Route: 047
  6. LATANOPROST. [Suspect]
     Active Substance: LATANOPROST
     Indication: ANGLE CLOSURE GLAUCOMA
     Dosage: 1 DF, QN
     Route: 047

REACTIONS (8)
  - Choroidal haemorrhage [Recovered/Resolved with Sequelae]
  - Vitreous haemorrhage [Unknown]
  - Product use in unapproved indication [Unknown]
  - Visual acuity reduced [Recovered/Resolved with Sequelae]
  - Condition aggravated [Recovered/Resolved with Sequelae]
  - Corneal oedema [Recovered/Resolved with Sequelae]
  - Eye pain [Not Recovered/Not Resolved]
  - Intraocular pressure increased [Recovered/Resolved with Sequelae]
